FAERS Safety Report 20818912 (Version 1)
Quarter: 2022Q2

REPORT INFORMATION
  Report Type: Spontaneous
  Country: US (occurrence: US)
  Receive Date: 20220512
  Receipt Date: 20220512
  Transmission Date: 20220721
  Serious: Yes (Hospitalization, Other)
  Sender: FDA-Public Use
  Company Number: US-SANOFI-01095027

PATIENT
  Age: 76 Year
  Sex: Male

DRUGS (1)
  1. LANTUS SOLOSTAR [Suspect]
     Active Substance: INSULIN GLARGINE
     Indication: Type 2 diabetes mellitus
     Dosage: 20 IU, QD

REACTIONS (7)
  - Cardiac failure congestive [Unknown]
  - Bladder cancer [Unknown]
  - Abdominal abscess [Unknown]
  - Opportunistic infection [Unknown]
  - Perforation [Unknown]
  - Nephrectomy [Unknown]
  - Renal cancer [Unknown]
